FAERS Safety Report 8542653-2 (Version None)
Quarter: 2012Q3

REPORT INFORMATION
  Report Type: 
  Country: None (occurrence: None)
  Receive Date: 20120727
  Receipt Date: 20120716
  Transmission Date: 20120928
  Serious: Yes (Other)
  Sender: FDA-Public Use
  Company Number: BR-AMGEN-BRASP2012045203

PATIENT
  Age: 51 Year
  Sex: Female
  Weight: 82 kg

DRUGS (10)
  1. METHOTREXATE [Concomitant]
     Dosage: STRENGTH 0.6MG
  2. NIMESULIDE [Concomitant]
     Dosage: STRENGTH 50MG
  3. OMEPRAZOLE [Concomitant]
     Dosage: STRENGTH 20MG
  4. FOLIC ACID [Concomitant]
     Dosage: UNK UNK, UNK
  5. ENBREL [Suspect]
     Dosage: 50 MG, QWK
     Route: 058
     Dates: start: 20120101, end: 20120101
  6. HYDROCHLOROTHIAZIDE [Concomitant]
     Dosage: STRENGTH 25MG
  7. ACETAMINOPHEN [Concomitant]
     Dosage: UNK UNK, UNK
  8. ENBREL [Suspect]
     Indication: RHEUMATOID ARTHRITIS
     Dosage: UNK
     Route: 058
     Dates: start: 20111001, end: 20111201
  9. CODEINE SULFATE [Concomitant]
     Dosage: UNK UNK, UNK
  10. LOSARTAN POTASSIUM [Concomitant]
     Dosage: STRENGTH 50MG

REACTIONS (6)
  - HERPES ZOSTER [None]
  - OROPHARYNGEAL PAIN [None]
  - SECRETION DISCHARGE [None]
  - COUGH [None]
  - PYREXIA [None]
  - INFLUENZA [None]
